FAERS Safety Report 24046764 (Version 1)
Quarter: 2024Q3

REPORT INFORMATION
  Report Type: Spontaneous
  Country: JP (occurrence: JP)
  Receive Date: 20240703
  Receipt Date: 20240703
  Transmission Date: 20241017
  Serious: Yes (Hospitalization, Other)
  Sender: BRISTOL MYERS SQUIBB
  Company Number: JP-TAIHO-2024-005344

PATIENT
  Age: 77 Year
  Sex: Male

DRUGS (3)
  1. ABRAXANE [Suspect]
     Active Substance: PACLITAXEL
     Indication: Gastric cancer
     Dosage: 130 MG/DAY, DETAILS NOT REPORTED, 4 DOSES?DAILY DOSE: 130 MILLIGRAM(S)
     Route: 041
     Dates: start: 20240319
  2. ABRAXANE [Suspect]
     Active Substance: PACLITAXEL
     Dosage: 110 MG/DAY, REDUCED BY 2 LEVELS, DETAILS NOT REPORTED, 3 DOSES?DAILY DOSE: 110 MILLIGRAM(S)
     Route: 041
     Dates: end: 20240612
  3. CYRAMZA [Concomitant]
     Active Substance: RAMUCIRUMAB
     Indication: Gastric cancer
     Dosage: NI
     Route: 041

REACTIONS (3)
  - Neutrophil count decreased [Recovered/Resolved]
  - Coronavirus infection [Unknown]
  - Off label use [Unknown]

NARRATIVE: CASE EVENT DATE: 20240528
